FAERS Safety Report 25743232 (Version 1)
Quarter: 2025Q3

REPORT INFORMATION
  Report Type: Spontaneous
  Country: EU (occurrence: EU)
  Receive Date: 20250830
  Receipt Date: 20250830
  Transmission Date: 20251021
  Serious: Yes (Death)
  Sender: AMGEN
  Company Number: EU-AMGEN-DEUSP2025169801

PATIENT
  Sex: Female

DRUGS (1)
  1. IMDELLTRA [Suspect]
     Active Substance: TARLATAMAB-DLLE
     Indication: Small cell lung cancer extensive stage
     Route: 065
     Dates: start: 2025, end: 2025

REACTIONS (3)
  - Death [Fatal]
  - Blood potassium increased [Unknown]
  - Liver function test increased [Unknown]

NARRATIVE: CASE EVENT DATE: 20250101
